FAERS Safety Report 11225910 (Version 1)
Quarter: 2015Q2

REPORT INFORMATION
  Report Type: Spontaneous
  Country: US (occurrence: US)
  Receive Date: 20150629
  Receipt Date: 20150629
  Transmission Date: 20150821
  Serious: Yes (Hospitalization, Other)
  Sender: FDA-Public Use
  Company Number: PHHY2015US075295

PATIENT
  Age: 62 Year
  Sex: Female
  Weight: 73 kg

DRUGS (6)
  1. ASPIRIN. [Concomitant]
     Active Substance: ASPIRIN
     Dosage: 81 MG, QD
     Route: 065
  2. TICAGRELOR [Interacting]
     Active Substance: TICAGRELOR
     Dosage: 90 MG, BID
     Route: 065
  3. TICAGRELOR [Interacting]
     Active Substance: TICAGRELOR
     Indication: MYOCARDIAL INFARCTION
     Dosage: 180 MG, UNK
     Route: 065
  4. ATORVASTATIN [Suspect]
     Active Substance: ATORVASTATIN
     Indication: MYOCARDIAL INFARCTION
     Dosage: 80 MG, QD
     Route: 065
  5. ASPIRIN. [Concomitant]
     Active Substance: ASPIRIN
     Indication: MYOCARDIAL INFARCTION
     Dosage: 324 MG
     Route: 065
  6. METOPROLOL TARTRATE. [Concomitant]
     Active Substance: METOPROLOL TARTRATE
     Indication: MYOCARDIAL INFARCTION
     Dosage: 25 MG, BID
     Route: 065

REACTIONS (7)
  - Nausea [Unknown]
  - Drug interaction [Unknown]
  - Myalgia [Unknown]
  - Vomiting [Unknown]
  - Hypophagia [Unknown]
  - Rhabdomyolysis [Unknown]
  - Acute kidney injury [Recovered/Resolved]
